FAERS Safety Report 12850197 (Version 2)
Quarter: 2016Q4

REPORT INFORMATION
  Report Type: Spontaneous
  Country: US (occurrence: US)
  Receive Date: 20161014
  Receipt Date: 20161118
  Transmission Date: 20170207
  Serious: Yes (Other)
  Sender: FDA-Public Use
  Company Number: US-MALLINCKRODT-T201604827

PATIENT
  Age: 6 Month
  Sex: Female

DRUGS (4)
  1. H.P. ACTHAR [Suspect]
     Active Substance: CORTICOTROPIN
     Indication: INFANTILE SPASMS
     Dosage: 12 UNITS ONCE DAILY FOR 3 DAYS
     Route: 030
     Dates: start: 201610
  2. PRILOSEC [Concomitant]
     Active Substance: OMEPRAZOLE MAGNESIUM
  3. BACTRIM [Concomitant]
     Active Substance: SULFAMETHOXAZOLE\TRIMETHOPRIM
  4. H.P. ACTHAR [Suspect]
     Active Substance: CORTICOTROPIN
     Dosage: 24 UNITS TWICE DAILY FOR 14 DAYS (TAPERING DOSAGE)
     Route: 030
     Dates: start: 20160924

REACTIONS (3)
  - Ophthalmological examination abnormal [Not Recovered/Not Resolved]
  - Acoustic stimulation tests abnormal [Not Recovered/Not Resolved]
  - Glaucoma [Not Recovered/Not Resolved]

NARRATIVE: CASE EVENT DATE: 20161003
